FAERS Safety Report 6960495-6 (Version None)
Quarter: 2010Q3

REPORT INFORMATION
  Report Type: 
  Country: None (occurrence: None)
  Receive Date: 20100901
  Receipt Date: 20100826
  Transmission Date: 20110219
  Serious: Yes (Other)
  Sender: FDA-Public Use
  Company Number: US-BAXTER-2010BH022418

PATIENT

DRUGS (8)
  1. CYCLOPHOSPHAMIDE [Suspect]
     Indication: PANCYTOPENIA
     Route: 042
  2. CYCLOPHOSPHAMIDE [Suspect]
     Indication: LYMPHOCYTIC LEUKAEMIA
     Route: 042
  3. RITUXIMAB [Suspect]
     Indication: PANCYTOPENIA
     Route: 042
  4. RITUXIMAB [Suspect]
     Indication: LYMPHOCYTIC LEUKAEMIA
     Route: 042
  5. VINCRISTINE SULFATE [Suspect]
     Indication: PANCYTOPENIA
     Route: 042
  6. VINCRISTINE SULFATE [Suspect]
     Indication: LYMPHOCYTIC LEUKAEMIA
     Route: 042
  7. PREDNISONE [Suspect]
     Indication: PANCYTOPENIA
     Route: 048
  8. PREDNISONE [Suspect]
     Indication: LYMPHOCYTIC LEUKAEMIA
     Route: 048

REACTIONS (1)
  - CLOSTRIDIUM DIFFICILE COLITIS [None]
